FAERS Safety Report 5910496-1 (Version None)
Quarter: 2008Q4

REPORT INFORMATION
  Report Type: 
  Country: None (occurrence: None)
  Receive Date: 20081007
  Receipt Date: 20080711
  Transmission Date: 20090506
  Serious: No
  Sender: FDA-Public Use
  Company Number: US-ASTRAZENECA-2008UW02272

PATIENT
  Age: 74 Year
  Sex: Female
  Weight: 63.5 kg

DRUGS (2)
  1. ARIMIDEX [Suspect]
     Indication: BREAST CANCER STAGE I
     Dosage: 1MG
     Route: 048
     Dates: end: 20071201
  2. TOPROL-XL [Concomitant]
     Route: 048

REACTIONS (2)
  - BONE PAIN [None]
  - OSTEOARTHRITIS [None]
